FAERS Safety Report 8016957-6 (Version None)
Quarter: 2012Q1

REPORT INFORMATION
  Report Type: 
  Country: None (occurrence: None)
  Receive Date: 20120102
  Receipt Date: 20111226
  Transmission Date: 20120608
  Serious: Yes (Hospitalization)
  Sender: FDA-Public Use
  Company Number: PHHY2011FR112607

PATIENT
  Sex: Male

DRUGS (7)
  1. VELCADE [Concomitant]
     Dates: start: 20110919
  2. VELCADE [Concomitant]
     Dates: start: 20110827
  3. DEXAMETHASONE [Concomitant]
     Dates: start: 20110919
  4. REVLIMID [Concomitant]
     Dates: start: 20110919
  5. DEXAMETHASONE [Concomitant]
     Dates: start: 20110827
  6. REVLIMID [Concomitant]
     Dates: start: 20110827
  7. ZOMETA [Suspect]
     Dosage: 3.5 MG, ONCE/SINGLE (4 MG/5 ML)
     Route: 042
     Dates: start: 20110923

REACTIONS (4)
  - CHEST PAIN [None]
  - MUSCULOSKELETAL STIFFNESS [None]
  - PARALYSIS [None]
  - CHEST DISCOMFORT [None]
